FAERS Safety Report 7850760-2 (Version None)
Quarter: 2011Q4

REPORT INFORMATION
  Report Type: 
  Country: None (occurrence: None)
  Receive Date: 20111021
  Receipt Date: 20111007
  Transmission Date: 20120403
  Serious: Yes (Hospitalization)
  Sender: FDA-Public Use
  Company Number: TCI2011A05431

PATIENT
  Age: 82 Year
  Sex: Male

DRUGS (10)
  1. PERSELIN (ALLYLESTRENOL) [Concomitant]
  2. ACTOS [Suspect]
     Indication: TYPE 2 DIABETES MELLITUS
     Dosage: 15 MG (15 MG,1 D) PER ORAL
     Route: 048
     Dates: end: 20111007
  3. FAMOTIDINE [Concomitant]
  4. LANTUS [Concomitant]
  5. ALINAMIN F (PROSULTIAMINE) [Concomitant]
  6. METGLUCO (METFORMIN HYDROCHLORIDE) [Concomitant]
  7. TAMSULOSIN HYDROCHLORIDE [Concomitant]
  8. ASPIRIN [Concomitant]
  9. CRESTOR [Concomitant]
  10. HUMALOG [Concomitant]

REACTIONS (1)
  - BLADDER CANCER STAGE 0, WITH CANCER IN SITU [None]
